FAERS Safety Report 6217435-7 (Version None)
Quarter: 2009Q2

REPORT INFORMATION
  Report Type: 
  Country: None (occurrence: None)
  Receive Date: 20090608
  Receipt Date: 20081009
  Transmission Date: 20091009
  Serious: No
  Sender: FDA-Public Use
  Company Number: A0751352A

PATIENT
  Age: 33 Year
  Sex: Female

DRUGS (2)
  1. WELLBUTRIN XL [Suspect]
     Indication: DEPRESSION
     Dosage: 450MG PER DAY
     Route: 048
     Dates: start: 20081001
  2. NO CONCURRENT MEDICATION [Concomitant]

REACTIONS (4)
  - APATHY [None]
  - CRYING [None]
  - INCREASED APPETITE [None]
  - MALAISE [None]
